FAERS Safety Report 6439589-X (Version None)
Quarter: 2009Q4

REPORT INFORMATION
  Report Type: 
  Country: None (occurrence: None)
  Receive Date: 20091113
  Receipt Date: 20091104
  Transmission Date: 20100525
  Serious: Yes (Hospitalization)
  Sender: FDA-Public Use
  Company Number: B0601787A

PATIENT
  Age: 94 Year
  Sex: Female
  Weight: 53 kg

DRUGS (4)
  1. ARIXTRA [Suspect]
     Indication: THROMBOSIS PROPHYLAXIS
     Dosage: 2.5MG PER DAY
     Route: 058
     Dates: start: 20080703, end: 20080706
  2. ARIMIDEX [Concomitant]
     Indication: BREAST CANCER
     Dosage: 1MG PER DAY
     Route: 048
  3. MEMANTINE HCL [Concomitant]
     Dosage: 10MG PER DAY
     Route: 048
  4. CIBLOR [Concomitant]
     Indication: ERYSIPELAS
     Route: 048
     Dates: start: 20080703, end: 20080709

REACTIONS (6)
  - ERYTHEMA [None]
  - MICROCYTIC ANAEMIA [None]
  - OEDEMA PERIPHERAL [None]
  - RENAL FAILURE [None]
  - SKIN NECROSIS [None]
  - SPONTANEOUS HAEMATOMA [None]
